FAERS Safety Report 13736834 (Version 6)
Quarter: 2018Q4

REPORT INFORMATION
  Report Type: Report from Study
  Country: US (occurrence: US)
  Receive Date: 20170710
  Receipt Date: 20181126
  Transmission Date: 20190204
  Serious: Yes (Hospitalization, Other)
  Sender: FDA-Public Use
  Company Number: US-ALEXION PHARMACEUTICALS INC.-A201707627

PATIENT
  Sex: Female
  Weight: 44.44 kg

DRUGS (4)
  1. STRENSIQ [Suspect]
     Active Substance: ASFOTASE ALFA
     Dosage: UNK, 4 TIMES A WEEK
     Route: 058
  2. STRENSIQ [Suspect]
     Active Substance: ASFOTASE ALFA
     Dosage: UNK
     Route: 058
     Dates: start: 20181115
  3. STRENSIQ [Suspect]
     Active Substance: ASFOTASE ALFA
     Indication: HYPOPHOSPHATASIA
     Dosage: UNK
     Route: 058
  4. STRENSIQ [Suspect]
     Active Substance: ASFOTASE ALFA
     Dosage: UNK SIX TIMES A WEEK
     Route: 058

REACTIONS (10)
  - Biliary colic [Unknown]
  - Injection site discolouration [Unknown]
  - Abdominal pain upper [Unknown]
  - Injection site mass [Recovered/Resolved]
  - Urticaria [Unknown]
  - Limb injury [Unknown]
  - Drug hypersensitivity [Unknown]
  - Blood alkaline phosphatase increased [Unknown]
  - Pain in extremity [Unknown]
  - Incorrect dose administered [Unknown]

NARRATIVE: CASE EVENT DATE: 20170709
